FAERS Safety Report 15013087 (Version 3)
Quarter: 2019Q1

REPORT INFORMATION
  Report Type: Spontaneous
  Country: US (occurrence: US)
  Receive Date: 20180614
  Receipt Date: 20190211
  Transmission Date: 20190417
  Serious: Yes (Hospitalization, Other)
  Sender: FDA-Public Use
  Company Number: US-OTSUKA-2017_019310

PATIENT
  Sex: Male

DRUGS (27)
  1. ABILIFY [Suspect]
     Active Substance: ARIPIPRAZOLE
     Indication: PSYCHOTIC DISORDER
     Dosage: 20 MG, QD
     Route: 048
     Dates: start: 200406
  2. ZOLOFT [Suspect]
     Active Substance: SERTRALINE HYDROCHLORIDE
     Indication: PRODUCT USED FOR UNKNOWN INDICATION
     Dosage: UNK
     Route: 065
  3. NIFEDIPINE. [Concomitant]
     Active Substance: NIFEDIPINE
     Indication: HYPERTENSION
     Dosage: UNK
     Route: 065
  4. ABILIFY [Suspect]
     Active Substance: ARIPIPRAZOLE
     Indication: IRRITABILITY
  5. ABILIFY [Suspect]
     Active Substance: ARIPIPRAZOLE
     Indication: ANXIETY
  6. DIVALPROEX [Concomitant]
     Active Substance: DIVALPROEX SODIUM
     Indication: PRODUCT USED FOR UNKNOWN INDICATION
     Dosage: 2 DF, QD (2 TABLETS AT BEDTIME)
     Route: 048
  7. LORATADINE. [Concomitant]
     Active Substance: LORATADINE
     Indication: PRODUCT USED FOR UNKNOWN INDICATION
     Dosage: 10 MG, QD (AS NEEDED)
     Route: 048
  8. VITAMIN E [Concomitant]
     Active Substance: .ALPHA.-TOCOPHEROL
     Indication: PRODUCT USED FOR UNKNOWN INDICATION
     Dosage: 2 DF, QD
     Route: 048
  9. ZOCOR [Concomitant]
     Active Substance: SIMVASTATIN
     Indication: BLOOD CHOLESTEROL INCREASED
     Dosage: UNK
     Route: 065
  10. CLOZAPINE. [Suspect]
     Active Substance: CLOZAPINE
     Dosage: 350 MG, QD (25 MG MORNING AND 325 MG AT BEDTIME)
     Route: 065
  11. ABILIFY [Suspect]
     Active Substance: ARIPIPRAZOLE
     Indication: AGITATION
  12. ABILIFY [Suspect]
     Active Substance: ARIPIPRAZOLE
     Indication: SOCIAL ANXIETY DISORDER
  13. LATUDA [Concomitant]
     Active Substance: LURASIDONE HYDROCHLORIDE
     Indication: PSYCHOTIC DISORDER
     Dosage: UNK
     Route: 065
  14. ABILIFY [Suspect]
     Active Substance: ARIPIPRAZOLE
     Indication: MAJOR DEPRESSION
     Dosage: 10 MG, QD
     Route: 048
     Dates: start: 20030212
  15. ABILIFY [Suspect]
     Active Substance: ARIPIPRAZOLE
     Indication: PERSONALITY DISORDER
  16. ARIPIPRAZOLE. [Suspect]
     Active Substance: ARIPIPRAZOLE
     Indication: PRODUCT USED FOR UNKNOWN INDICATION
     Dosage: 20 MG, QD
     Route: 048
  17. IBUPROFEN. [Concomitant]
     Active Substance: IBUPROFEN
     Indication: PRODUCT USED FOR UNKNOWN INDICATION
     Dosage: 800 MG, QD (AS NEEDED WITH FOOD)
     Route: 048
  18. RANITIDINE. [Concomitant]
     Active Substance: RANITIDINE
     Indication: HYPERCHLORHYDRIA
     Dosage: 150 MG, QD
     Route: 048
  19. SERTRALINE [Concomitant]
     Active Substance: SERTRALINE HYDROCHLORIDE
     Indication: PRODUCT USED FOR UNKNOWN INDICATION
     Dosage: 100 MG, QD (EVERY MORNING)
     Route: 048
  20. DEPAKOTE [Suspect]
     Active Substance: DIVALPROEX SODIUM
     Indication: PRODUCT USED FOR UNKNOWN INDICATION
     Dosage: 100 MG, QD
     Route: 065
  21. CELEXA [Concomitant]
     Active Substance: CITALOPRAM HYDROBROMIDE
     Indication: DEPRESSION
     Dosage: UNK
     Route: 065
  22. ABILIFY [Suspect]
     Active Substance: ARIPIPRAZOLE
     Indication: SCHIZOPHRENIA
     Dosage: UNK
     Route: 065
     Dates: start: 200306, end: 201112
  23. CLOZAPINE. [Suspect]
     Active Substance: CLOZAPINE
     Indication: PRODUCT USED FOR UNKNOWN INDICATION
     Dosage: 100 MG, QD
     Route: 048
  24. CLOZAPINE. [Suspect]
     Active Substance: CLOZAPINE
     Dosage: 300 MG, QD (100 MG THREE TABLETS AT BEDTIME)
     Route: 048
  25. CLOZAPINE. [Suspect]
     Active Substance: CLOZAPINE
     Dosage: 400 MG, QD (ONCE EVERY BEDTIME)
     Route: 048
  26. ZOLOFT [Suspect]
     Active Substance: SERTRALINE HYDROCHLORIDE
     Dosage: 100 MG, QD
     Route: 065
  27. DEPAKOTE [Suspect]
     Active Substance: DIVALPROEX SODIUM
     Dosage: 80 MG, QD (BEDTIME)
     Route: 065

REACTIONS (53)
  - Compulsive shopping [Unknown]
  - Tachycardia [Unknown]
  - Product use in unapproved indication [Unknown]
  - Ejaculation delayed [Unknown]
  - Hyperventilation [Unknown]
  - Jaw disorder [Unknown]
  - Salivary hypersecretion [Unknown]
  - Hypersexuality [Unknown]
  - Orthostatic hypotension [Unknown]
  - Restlessness [Unknown]
  - Economic problem [Unknown]
  - Energy increased [Unknown]
  - Emotional disorder [Unknown]
  - Blunted affect [Unknown]
  - Feeling abnormal [Unknown]
  - Dyspepsia [Unknown]
  - Sedation [Unknown]
  - Weight increased [Not Recovered/Not Resolved]
  - Dizziness [Unknown]
  - Tearfulness [Unknown]
  - Emotional distress [Unknown]
  - Eating disorder [Unknown]
  - Flatulence [Unknown]
  - Libido decreased [Unknown]
  - Muscle spasms [Unknown]
  - Compulsive sexual behaviour [Unknown]
  - Intrusive thoughts [Unknown]
  - Mood swings [Unknown]
  - Abdominal discomfort [Unknown]
  - Tremor [Unknown]
  - Loss of employment [Unknown]
  - Mental disorder [Unknown]
  - Suicidal ideation [Unknown]
  - Hypoaesthesia [Unknown]
  - Blood pressure abnormal [Unknown]
  - Delusion [Unknown]
  - Drooling [Unknown]
  - Sexual dysfunction [Unknown]
  - Sluggishness [Unknown]
  - Anger [Unknown]
  - Fatigue [Unknown]
  - Agitation [Unknown]
  - Tardive dyskinesia [Unknown]
  - Condition aggravated [Unknown]
  - Suicide attempt [Unknown]
  - Ear infection [Unknown]
  - Sensory loss [Unknown]
  - Psychiatric symptom [Unknown]
  - Depressed mood [Unknown]
  - Sleep disorder [Unknown]
  - Dyskinesia [Unknown]
  - Somnolence [Unknown]
  - Nausea [Unknown]

NARRATIVE: CASE EVENT DATE: 200306
